FAERS Safety Report 23680657 (Version 1)
Quarter: 2024Q1

REPORT INFORMATION
  Report Type: Report from Study
  Country: US (occurrence: US)
  Receive Date: 20240328
  Receipt Date: 20240328
  Transmission Date: 20240410
  Serious: Yes (Other)
  Sender: FDA-Public Use
  Company Number: US-JAZZ PHARMACEUTICALS-2022-US-010815

PATIENT
  Age: 48 Year
  Sex: Male

DRUGS (10)
  1. XYWAV [Suspect]
     Active Substance: CALCIUM OXYBATE\MAGNESIUM OXYBATE\POTASSIUM OXYBATE\SODIUM OXYBATE
     Indication: Narcolepsy
     Dosage: 2.25 GRAM, BID
     Route: 048
     Dates: start: 202203, end: 202203
  2. XYWAV [Suspect]
     Active Substance: CALCIUM OXYBATE\MAGNESIUM OXYBATE\POTASSIUM OXYBATE\SODIUM OXYBATE
     Indication: Cataplexy
     Dosage: 3.75 GRAM, BID
     Route: 048
     Dates: start: 202203
  3. XYWAV [Suspect]
     Active Substance: CALCIUM OXYBATE\MAGNESIUM OXYBATE\POTASSIUM OXYBATE\SODIUM OXYBATE
     Indication: Somnolence
     Dosage: 4.5 GRAM, BID
     Route: 048
     Dates: start: 202203
  4. XYWAV [Suspect]
     Active Substance: CALCIUM OXYBATE\MAGNESIUM OXYBATE\POTASSIUM OXYBATE\SODIUM OXYBATE
     Dosage: UNK
  5. ARMODAFINIL [Concomitant]
     Active Substance: ARMODAFINIL
     Dosage: UNK
     Dates: start: 20220208
  6. VENLAFAXINE HCL [Concomitant]
     Active Substance: VENLAFAXINE HYDROCHLORIDE
     Dosage: UNK
     Dates: start: 20210309
  7. EFFEXOR [Concomitant]
     Active Substance: VENLAFAXINE HYDROCHLORIDE
     Dosage: UNK
     Dates: start: 20210309
  8. LOSARTAN AND HYDROCHLOROTHIAZIDE [Concomitant]
     Active Substance: HYDROCHLOROTHIAZIDE\LOSARTAN POTASSIUM
     Dosage: 100-25 MG TAB
     Dates: start: 20210309
  9. MIRTAZAPINE [Concomitant]
     Active Substance: MIRTAZAPINE
     Dosage: UNK
     Dates: start: 20210801
  10. LATUDA [Concomitant]
     Active Substance: LURASIDONE HYDROCHLORIDE
     Dosage: UNK
     Dates: start: 20211101

REACTIONS (3)
  - Surgery [Unknown]
  - Product administration interrupted [Unknown]
  - Drug titration error [Unknown]

NARRATIVE: CASE EVENT DATE: 20240101
